FAERS Safety Report 24037619 (Version 1)
Quarter: 2024Q3

REPORT INFORMATION
  Report Type: Report from Study
  Country: US (occurrence: US)
  Receive Date: 20240702
  Receipt Date: 20240702
  Transmission Date: 20241017
  Serious: Yes (Other)
  Sender: GLAXOSMITHKLINE
  Company Number: US-GLAXOSMITHKLINE-US2024AMR080619

PATIENT

DRUGS (1)
  1. BELIMUMAB [Suspect]
     Active Substance: BELIMUMAB
     Indication: Lupus nephritis
     Dosage: UNK

REACTIONS (5)
  - Lupus nephritis [Unknown]
  - Condition aggravated [Not Recovered/Not Resolved]
  - Proteinuria [Unknown]
  - Blood creatinine increased [Unknown]
  - Drug intolerance [Unknown]
